FAERS Safety Report 21119188 (Version 1)
Quarter: 2022Q3

REPORT INFORMATION
  Report Type: Spontaneous
  Country: US (occurrence: None)
  Receive Date: 20220721
  Receipt Date: 20220721
  Transmission Date: 20221026
  Serious: Yes (Death)
  Sender: FDA-Public Use
  Company Number: None

PATIENT
  Age: 44 Year
  Sex: Male
  Weight: 102 kg

DRUGS (2)
  1. BARICITINIB [Suspect]
     Active Substance: BARICITINIB
     Indication: COVID-19
     Dosage: 4 MG TAB EVERY DAY PO?
     Route: 048
     Dates: start: 20211204, end: 20211211
  2. REMDESIVIR [Suspect]
     Active Substance: REMDESIVIR
     Indication: COVID-19 treatment
     Dosage: 200 MG EVERY DAY IV?
     Route: 042
     Dates: start: 20211204, end: 20211208

REACTIONS (7)
  - COVID-19 [None]
  - Hypoxia [None]
  - Tachycardia [None]
  - Pyrexia [None]
  - Hypophagia [None]
  - Diarrhoea [None]
  - Chills [None]

NARRATIVE: CASE EVENT DATE: 20211211
